FAERS Safety Report 6372596-4 (Version None)
Quarter: 2009Q3

REPORT INFORMATION
  Report Type: 
  Country: None (occurrence: None)
  Receive Date: 20090924
  Receipt Date: 20080908
  Transmission Date: 20100115
  Serious: No
  Sender: FDA-Public Use
  Company Number: US-ASTRAZENECA-2008UW18611

PATIENT
  Age: 36 Year
  Sex: Female
  Weight: 75.7 kg

DRUGS (6)
  1. SEROQUEL [Suspect]
     Indication: BIPOLAR DISORDER
     Route: 048
     Dates: start: 20080301
  2. SEROQUEL [Suspect]
     Indication: INSOMNIA
     Route: 048
     Dates: start: 20080301
  3. AMBIEN [Concomitant]
  4. XANAX [Concomitant]
  5. FORICET [Concomitant]
  6. MUSCLE RELAXERS [Concomitant]

REACTIONS (9)
  - ABNORMAL DREAMS [None]
  - ABNORMAL SLEEP-RELATED EVENT [None]
  - AMNESIA [None]
  - BLOOD CHOLESTEROL INCREASED [None]
  - CHOKING [None]
  - MIDDLE INSOMNIA [None]
  - SOMNAMBULISM [None]
  - SOMNOLENCE [None]
  - WEIGHT INCREASED [None]
